FAERS Safety Report 11628439 (Version 3)
Quarter: 2015Q4

REPORT INFORMATION
  Report Type: Spontaneous
  Country: US (occurrence: US)
  Receive Date: 20151014
  Receipt Date: 20151118
  Transmission Date: 20160304
  Serious: Yes (Other)
  Sender: FDA-Public Use
  Company Number: US-TEVA-598995USA

PATIENT
  Age: 25 Year
  Sex: Female

DRUGS (2)
  1. ZECUITY [Suspect]
     Active Substance: SUMATRIPTAN SUCCINATE
     Indication: MIGRAINE
     Route: 062
     Dates: start: 20151002, end: 20151002
  2. ZECUITY [Suspect]
     Active Substance: SUMATRIPTAN SUCCINATE
     Route: 062
     Dates: start: 20151004, end: 20151004

REACTIONS (8)
  - Application site burn [Recovered/Resolved]
  - Underdose [Unknown]
  - Paraesthesia [Recovered/Resolved]
  - Device leakage [Unknown]
  - Application site pain [Recovered/Resolved]
  - Application site irritation [Recovered/Resolved]
  - Application site erythema [Recovered/Resolved]
  - Application site vesicles [Recovered/Resolved]

NARRATIVE: CASE EVENT DATE: 20151002
